FAERS Safety Report 8796677 (Version 3)
Quarter: 2013Q3

REPORT INFORMATION
  Report Type: Spontaneous
  Country: US (occurrence: US)
  Receive Date: 20120917
  Receipt Date: 20130902
  Transmission Date: 20140515
  Serious: No
  Sender: FDA-Public Use
  Company Number: US-ASTRAZENECA-2012SE57554

PATIENT
  Age: 63 Year
  Sex: Female

DRUGS (2)
  1. SEROQUEL [Suspect]
     Route: 048
  2. SEROQUEL [Suspect]
     Dosage: ONE AND A HALF TABLET, DAILY
     Route: 048

REACTIONS (5)
  - Insomnia [Unknown]
  - Post-traumatic stress disorder [Unknown]
  - Visual impairment [Unknown]
  - Drug dose omission [Unknown]
  - Intentional drug misuse [Unknown]
